FAERS Safety Report 17727412 (Version 3)
Quarter: 2020Q2

REPORT INFORMATION
  Report Type: Report from Study
  Country: CN (occurrence: CN)
  Receive Date: 20200430
  Receipt Date: 20200618
  Transmission Date: 20200714
  Serious: Yes (Hospitalization)
  Sender: FDA-Public Use
  Company Number: CN-TAKEDA-2020TUS020327

PATIENT
  Age: 61 Year
  Sex: Male
  Weight: 71.8 kg

DRUGS (12)
  1. DULOXETINE. [Concomitant]
     Active Substance: DULOXETINE
     Indication: MAJOR DEPRESSION
     Dosage: 20 MILLIGRAM, QD
     Route: 048
     Dates: start: 20200420, end: 20200422
  2. CLONAZEPAM. [Concomitant]
     Active Substance: CLONAZEPAM
     Indication: SLEEP DISORDER
     Dosage: 3 MILLIGRAM, QD
     Route: 048
     Dates: start: 20191205, end: 20200423
  3. OLANZAPINE. [Concomitant]
     Active Substance: OLANZAPINE
     Indication: ANTIDEPRESSANT THERAPY
     Dosage: 5 MILLIGRAM, QD
     Route: 048
     Dates: start: 20200420, end: 20200424
  4. DIAZEPAM. [Concomitant]
     Active Substance: DIAZEPAM
     Dosage: 2.5 MILLIGRAM, QD
     Route: 048
     Dates: start: 20200422, end: 20200425
  5. DIAZEPAM. [Concomitant]
     Active Substance: DIAZEPAM
     Indication: ANXIOLYTIC THERAPY
     Dosage: 5 MILLIGRAM, QD
     Route: 048
     Dates: start: 20200420, end: 20200421
  6. VORTIOXETINE. [Suspect]
     Active Substance: VORTIOXETINE
     Indication: MAJOR DEPRESSION
     Dosage: 10 MILLIGRAM, QD
     Route: 048
     Dates: start: 20191202, end: 20200210
  7. CLONAZEPAM. [Concomitant]
     Active Substance: CLONAZEPAM
     Dosage: 4 MILLIGRAM, QD
     Route: 048
     Dates: start: 20200424
  8. VORTIOXETINE. [Suspect]
     Active Substance: VORTIOXETINE
     Dosage: 10 MILLIGRAM, QD
     Route: 048
     Dates: start: 20200331
  9. DULOXETINE. [Concomitant]
     Active Substance: DULOXETINE
     Dosage: 40 MILLIGRAM, QD
     Route: 048
     Dates: start: 20200423, end: 20200424
  10. DULOXETINE. [Concomitant]
     Active Substance: DULOXETINE
     Dosage: 80 MILLIGRAM, QD
     Route: 048
     Dates: start: 20200429
  11. VORTIOXETINE. [Suspect]
     Active Substance: VORTIOXETINE
     Dosage: 10 MILLIGRAM, QD
     Route: 048
     Dates: start: 20200217, end: 20200315
  12. DULOXETINE. [Concomitant]
     Active Substance: DULOXETINE
     Dosage: 60 MILLIGRAM, QD
     Route: 048
     Dates: start: 20200425, end: 20200428

REACTIONS (1)
  - Depression [Recovered/Resolved]

NARRATIVE: CASE EVENT DATE: 20200420
